FAERS Safety Report 6675283-8 (Version None)
Quarter: 2010Q2

REPORT INFORMATION
  Report Type: 
  Country: None (occurrence: None)
  Receive Date: 20100409
  Receipt Date: 20100108
  Transmission Date: 20101027
  Serious: No
  Sender: FDA-Public Use
  Company Number: A0838506A

PATIENT
  Age: 57 Year
  Sex: Female

DRUGS (9)
  1. TYKERB [Suspect]
     Dosage: 5TAB PER DAY
     Route: 048
     Dates: start: 20091201
  2. DILANTIN [Concomitant]
  3. LAXATIVE [Concomitant]
  4. OXYCONTIN [Concomitant]
  5. STEROID [Concomitant]
  6. PERCOCET [Concomitant]
  7. XANAX [Concomitant]
  8. XELODA [Concomitant]
  9. BONE STIMULANT (UNSPECIFIED) [Concomitant]

REACTIONS (1)
  - CONSTIPATION [None]
